FAERS Safety Report 10569748 (Version 4)
Quarter: 2015Q1

REPORT INFORMATION
  Report Type: Report from Study
  Country: DE (occurrence: DE)
  Receive Date: 20141107
  Receipt Date: 20150216
  Transmission Date: 20150720
  Serious: Yes (Hospitalization)
  Sender: FDA-Public Use
  Company Number: DE-ROCHE-1484873

PATIENT
  Sex: Female

DRUGS (17)
  1. VINCRISTINE [Suspect]
     Active Substance: VINCRISTINE
     Indication: MALIGNANT LYMPHOID NEOPLASM
     Route: 042
     Dates: start: 20140820
  2. MESNA. [Concomitant]
     Active Substance: MESNA
     Route: 048
     Dates: start: 20140820
  3. RITUXIMAB [Suspect]
     Active Substance: RITUXIMAB
     Indication: MALIGNANT LYMPHOID NEOPLASM
     Route: 042
     Dates: start: 20140815
  4. RAMIPRIL. [Concomitant]
     Active Substance: RAMIPRIL
     Indication: HYPERTENSION
     Route: 065
  5. BISOPROLOL [Concomitant]
     Active Substance: BISOPROLOL
     Indication: HYPERTENSION
     Route: 048
  6. FILGRASTIM [Suspect]
     Active Substance: FILGRASTIM
     Indication: MALIGNANT LYMPHOID NEOPLASM
     Dosage: DOSE:48 MIL, IE, 5 DAYS A CYCLE
     Route: 058
     Dates: start: 20141016
  7. PREDNISONE. [Suspect]
     Active Substance: PREDNISONE
     Indication: MALIGNANT LYMPHOID NEOPLASM
     Route: 048
     Dates: start: 20140808
  8. LEVOFLOXACIN. [Concomitant]
     Active Substance: LEVOFLOXACIN
     Route: 048
     Dates: start: 20140825
  9. ALLOPURINOL. [Concomitant]
     Active Substance: ALLOPURINOL
     Indication: HYPERURICAEMIA
     Route: 048
  10. CYCLOPHOSPHAMIDE. [Suspect]
     Active Substance: CYCLOPHOSPHAMIDE
     Indication: MALIGNANT LYMPHOID NEOPLASM
     Route: 042
     Dates: start: 20140820
  11. CHOLECALCIFEROL [Concomitant]
     Active Substance: CHOLECALCIFEROL
     Dosage: DOSE: 20000 IE
     Route: 048
  12. PEGFILGRASTIM [Suspect]
     Active Substance: PEGFILGRASTIM
     Indication: MALIGNANT LYMPHOID NEOPLASM
     Route: 058
     Dates: start: 20140822, end: 20141003
  13. SULFAMETHOXAZOLE/TRIMETHOPRIM [Concomitant]
     Active Substance: SULFAMETHOXAZOLE\TRIMETHOPRIM
     Route: 048
     Dates: start: 20140822
  14. DOXORUBICIN [Suspect]
     Active Substance: DOXORUBICIN
     Indication: MALIGNANT LYMPHOID NEOPLASM
     Route: 042
     Dates: start: 20140820
  15. ACYCLOVIR. [Concomitant]
     Active Substance: ACYCLOVIR
     Route: 048
     Dates: start: 20140819
  16. ACETYLSALICYLIC ACID [Concomitant]
     Active Substance: ASPIRIN
     Route: 048
  17. ATORVASTATIN [Concomitant]
     Active Substance: ATORVASTATIN
     Indication: HYPERCHOLESTEROLAEMIA
     Route: 065

REACTIONS (4)
  - Vagus nerve disorder [Recovered/Resolved]
  - General physical health deterioration [Recovered/Resolved]
  - Sinus tachycardia [Recovered/Resolved]
  - Vertigo [Recovered/Resolved]

NARRATIVE: CASE EVENT DATE: 20140916
